FAERS Safety Report 9300197 (Version 1)
Quarter: 2013Q1

REPORT INFORMATION
  Report Type: Spontaneous
  Country: US (occurrence: None)
  Receive Date: 20121231
  Receipt Date: 20121231
  Transmission Date: 20140127
  Serious: Yes (Hospitalization, Other)
  Sender: FDA-Public Use
  Company Number: RB-41616-2012

PATIENT
  Sex: Male

DRUGS (3)
  1. SUBOXONE 8MG/2 [Suspect]
     Indication: DRUG DEPENDENCE
     Dosage: 16MG, SUBOXONE FILM TRANSPLACENTAL
     Dates: start: 201110, end: 20111219
  2. SUBUTEX [Suspect]
     Indication: DRUG DEPENDENCE
     Dosage: 16MG, TRANSPLACENTAL
     Dates: start: 201201, end: 20120613
  3. NICOTINE [Suspect]
     Indication: NICOTINE DEPENDENCE
     Dosage: 20MG DAILY TRANSPLACENTAL
     Dates: end: 20120613

REACTIONS (2)
  - Foetal exposure during pregnancy [None]
  - Drug withdrawal syndrome neonatal [None]
